FAERS Safety Report 24073589 (Version 1)
Quarter: 2024Q3

REPORT INFORMATION
  Report Type: Spontaneous
  Country: US (occurrence: US)
  Receive Date: 20240710
  Receipt Date: 20240710
  Transmission Date: 20241016
  Serious: Yes (Death, Life-Threatening, Hospitalization, Other)
  Sender: PFIZER
  Company Number: US-PFIZER INC-07H-163-0313561-00

PATIENT
  Age: 66 Year
  Sex: Male

DRUGS (10)
  1. METHYLPREDNISOLONE SODIUM SUCCINATE [Interacting]
     Active Substance: METHYLPREDNISOLONE SODIUM SUCCINATE
     Indication: Polymyositis
     Dosage: 500 MG, DAILY
     Route: 042
  2. PROPOFOL [Interacting]
     Active Substance: PROPOFOL
     Indication: Sedative therapy
     Dosage: 30 UG/KG PER MINUTE, INFUSION
  3. CYCLOSPORINE [Suspect]
     Active Substance: CYCLOSPORINE
     Dosage: 150 MG, DAILY
  4. COLCHICINE [Suspect]
     Active Substance: COLCHICINE
     Dosage: 1.2 MG, DAILY
  5. SIMVASTATIN [Suspect]
     Active Substance: SIMVASTATIN
     Dosage: 60 MG, DAILY
  6. SIMVASTATIN [Suspect]
     Active Substance: SIMVASTATIN
     Dosage: 30 MG, DAILY
  7. MYCOPHENOLIC ACID [Concomitant]
     Active Substance: MYCOPHENOLIC ACID
     Dosage: 500 MG, DAILY
  8. INSULIN NOS [Concomitant]
     Active Substance: INSULIN NOS
     Dosage: UNK
  9. PREDNISONE [Concomitant]
     Active Substance: PREDNISONE
     Dosage: 7.5 MG, DAILY
  10. PREDNISONE [Concomitant]
     Active Substance: PREDNISONE
     Dosage: 30 MG, DAILY

REACTIONS (7)
  - Death [Fatal]
  - Myopathy toxic [Fatal]
  - Rhabdomyolysis [Fatal]
  - Oliguria [Fatal]
  - Septic shock [Fatal]
  - Pneumonia [Fatal]
  - Potentiating drug interaction [Fatal]
